FAERS Safety Report 9334178 (Version 1)
Quarter: 2013Q2

REPORT INFORMATION
  Report Type: Spontaneous
  Country: US (occurrence: US)
  Receive Date: 20130606
  Receipt Date: 20130606
  Transmission Date: 20140414
  Serious: No
  Sender: FDA-Public Use
  Company Number: US-TARO-2013P1004430

PATIENT
  Sex: Female

DRUGS (2)
  1. CLORAZEPATE DIPOTASSIUM [Suspect]
     Dates: end: 201303
  2. WARFARIN SODIUM TABLETS USP 3MG [Suspect]
     Route: 048
     Dates: start: 20130305, end: 201303

REACTIONS (2)
  - Blood sodium increased [Not Recovered/Not Resolved]
  - Dysgeusia [Not Recovered/Not Resolved]
